FAERS Safety Report 7764124-3 (Version None)
Quarter: 2011Q3

REPORT INFORMATION
  Report Type: 
  Country: None (occurrence: None)
  Receive Date: 20110921
  Receipt Date: 20110909
  Transmission Date: 20111222
  Serious: Yes (Other)
  Sender: FDA-Public Use
  Company Number: US-ELI_LILLY_AND_COMPANY-US201109002873

PATIENT
  Sex: Female

DRUGS (3)
  1. FORTEO [Suspect]
     Indication: OSTEOPOROSIS
     Dosage: 20 UG, QD
     Route: 065
  2. ANXIOLYTICS [Concomitant]
     Indication: ANXIETY
  3. ANALGESICS [Concomitant]
     Indication: PAIN

REACTIONS (5)
  - SWELLING FACE [None]
  - EYE SWELLING [None]
  - FATIGUE [None]
  - HYPERSENSITIVITY [None]
  - SPINAL FUSION SURGERY [None]
